FAERS Safety Report 11914921 (Version 3)
Quarter: 2016Q1

REPORT INFORMATION
  Report Type: Report from Study
  Country: US (occurrence: US)
  Receive Date: 20160113
  Receipt Date: 20160125
  Transmission Date: 20160526
  Serious: Yes (Hospitalization)
  Sender: FDA-Public Use
  Company Number: US-ROCHE-1692199

PATIENT
  Age: 61 Year
  Sex: Female
  Weight: 73.93 kg

DRUGS (9)
  1. AMLODIPINE BESYLATE. [Concomitant]
     Active Substance: AMLODIPINE BESYLATE
     Indication: HYPERTENSION
     Route: 048
     Dates: start: 2013
  2. DRONABINOL. [Concomitant]
     Active Substance: DRONABINOL
     Indication: DECREASED APPETITE
     Route: 048
     Dates: start: 20151218
  3. ASPIRIN. [Concomitant]
     Active Substance: ASPIRIN
     Indication: CORONARY ARTERY DISEASE
     Route: 048
     Dates: start: 2013
  4. COBIMETINIB [Suspect]
     Active Substance: COBIMETINIB
     Indication: NEOPLASM
     Dosage: MOST RECENT DOSE OF COBIMETINIB, 80 MG, WAS ADMINISTERED ON 04/JAN/2016, PRIOR TO THE EVENT.
     Route: 048
     Dates: start: 20150925
  5. GDC-0994 (ERK INHIBITOR) [Suspect]
     Active Substance: INVESTIGATIONAL PRODUCT
     Indication: NEOPLASM
     Dosage: MOST RECENT DOSE OF GDC-0994 (ERK INHIBITOR), 200 MG WAS ADMINISTERED ON 07/JAN/2016, PRIOR TO THE E
     Route: 048
     Dates: start: 20150925
  6. ERGOCALCIFEROL. [Concomitant]
     Active Substance: ERGOCALCIFEROL
     Indication: NUTRITIONAL SUPPLEMENTATION
     Route: 048
     Dates: start: 20150201
  7. ALBUTEROL. [Concomitant]
     Active Substance: ALBUTEROL
     Indication: COUGH
     Dosage: DOSE 1 PUFF
     Route: 055
     Dates: start: 20150910
  8. ZOLPIDEM TARTRATE. [Concomitant]
     Active Substance: ZOLPIDEM TARTRATE
     Indication: INSOMNIA
     Route: 048
     Dates: start: 2005
  9. IMODIUM [Concomitant]
     Active Substance: LOPERAMIDE HYDROCHLORIDE
     Indication: DIARRHOEA
     Route: 065
     Dates: start: 20150926

REACTIONS (1)
  - Metastases to central nervous system [Not Recovered/Not Resolved]

NARRATIVE: CASE EVENT DATE: 20160107
